FAERS Safety Report 4383316-7 (Version None)
Quarter: 2004Q2

REPORT INFORMATION
  Report Type: 
  Country: None (occurrence: None)
  Receive Date: 20040618
  Receipt Date: 20040527
  Transmission Date: 20050107
  Serious: Yes (Hospitalization, Other)
  Sender: FDA-Public Use
  Company Number: US_0405103165

PATIENT
  Age: 61 Year
  Sex: Female
  Weight: 65 kg

DRUGS (31)
  1. VANCOMYCIN [Suspect]
     Indication: ALPHA HAEMOLYTIC STREPTOCOCCAL INFECTION
     Dates: start: 20040229, end: 20040320
  2. VANCOMYCIN [Suspect]
     Indication: ALPHA HAEMOLYTIC STREPTOCOCCAL INFECTION
     Dosage: 1 G/3
     Dates: start: 20040421
  3. NEUPOGEN [Concomitant]
  4. CYTARABINE [Concomitant]
  5. DAUNORUBICIN HCL [Concomitant]
  6. ZOSYN [Concomitant]
  7. AZACTAM [Concomitant]
  8. CANCIDAS [Concomitant]
  9. LEVAQUIN [Concomitant]
  10. CLINDAMYCIN [Concomitant]
  11. ZOVIRAX [Concomitant]
  12. CLARITIN [Concomitant]
  13. NEUPOGEN (FILGRASTIM) [Concomitant]
  14. TOPROL XL (METROPROLOL SUCCINATE) [Concomitant]
  15. ZANTAC [Concomitant]
  16. BENADRYL [Concomitant]
  17. ATIVAN [Concomitant]
  18. DEMEROL [Concomitant]
  19. MAGIC MOUTHWASH [Concomitant]
  20. ZOFRAN [Concomitant]
  21. K-DUR 10 [Concomitant]
  22. LASIX [Concomitant]
  23. SENOKOT [Concomitant]
  24. MULTI-VITAMINS [Concomitant]
  25. LIPITOR [Concomitant]
  26. LEXAPRO [Concomitant]
  27. ZOSYN [Concomitant]
  28. LEVAQUIN [Concomitant]
  29. FLAGYL [Concomitant]
  30. TUMS (CALCIUM CARBONATE) [Concomitant]
  31. VORICONAZOLE [Concomitant]

REACTIONS (14)
  - ALPHA HAEMOLYTIC STREPTOCOCCAL INFECTION [None]
  - ANOREXIA [None]
  - ASTHENIA [None]
  - CARDIAC FAILURE CONGESTIVE [None]
  - HAEMOGLOBIN DECREASED [None]
  - HEADACHE [None]
  - HYPOXIA [None]
  - LOSS OF CONSCIOUSNESS [None]
  - LUNG INFILTRATION [None]
  - NASAL CONGESTION [None]
  - PLATELET COUNT DECREASED [None]
  - RASH ERYTHEMATOUS [None]
  - SYNCOPE VASOVAGAL [None]
  - WHITE BLOOD CELL COUNT DECREASED [None]
